FAERS Safety Report 7070069-7 (Version None)
Quarter: 2010Q4

REPORT INFORMATION
  Report Type: 
  Country: None (occurrence: None)
  Receive Date: 20101028
  Receipt Date: 20100807
  Transmission Date: 20110411
  Serious: No
  Sender: FDA-Public Use
  Company Number: US-WYE-H16797510

PATIENT
  Sex: Female
  Weight: 99.88 kg

DRUGS (3)
  1. EFFEXOR [Suspect]
     Indication: MAJOR DEPRESSION
     Dosage: UNSPECIFIED
     Route: 048
  2. PRISTIQ [Suspect]
     Indication: MAJOR DEPRESSION
     Route: 048
     Dates: start: 20100701, end: 20100803
  3. PRISTIQ [Suspect]
     Route: 048
     Dates: start: 20100804

REACTIONS (10)
  - CONDITION AGGRAVATED [None]
  - DRUG EFFECT DECREASED [None]
  - HEADACHE [None]
  - HYPERHIDROSIS [None]
  - IMMOBILE [None]
  - MIGRAINE [None]
  - MYALGIA [None]
  - PYREXIA [None]
  - SKIN WARM [None]
  - THERAPEUTIC RESPONSE UNEXPECTED [None]
